FAERS Safety Report 18603048 (Version 1)
Quarter: 2020Q4

REPORT INFORMATION
  Report Type: Spontaneous
  Country: IN (occurrence: IN)
  Receive Date: 20201210
  Receipt Date: 20201210
  Transmission Date: 20210114
  Serious: Yes (Death, Other)
  Sender: FDA-Public Use
  Company Number: IN-TOLMAR, INC.-20IN024361

PATIENT
  Age: 35 Year
  Sex: Female

DRUGS (3)
  1. ELIGARD [Suspect]
     Active Substance: LEUPROLIDE ACETATE
     Indication: ENDOMETRIOSIS
     Dosage: 3.75 MG
     Route: 065
  2. MEDROXYPROGESTERONE ACETATE. [Suspect]
     Active Substance: MEDROXYPROGESTERONE ACETATE
     Indication: ENDOMETRIOSIS
     Dosage: 150 MG, Q 1 MONTH
     Route: 030
  3. LETROZOLE. [Suspect]
     Active Substance: LETROZOLE
     Indication: ENDOMETRIOSIS
     Dosage: 2.5 MG, QD
     Route: 048

REACTIONS (5)
  - Endometrial stromal sarcoma [Unknown]
  - Shock haemorrhagic [Fatal]
  - Off label use [Unknown]
  - Haemoperitoneum [Fatal]
  - Tumour rupture [Fatal]
